FAERS Safety Report 8509913-2 (Version None)
Quarter: 2012Q3

REPORT INFORMATION
  Report Type: 
  Country: None (occurrence: None)
  Receive Date: 20120713
  Receipt Date: 20120704
  Transmission Date: 20120928
  Serious: Yes (Other)
  Sender: FDA-Public Use
  Company Number: JP-ASTRAZENECA-2012SE47481

PATIENT
  Sex: Female

DRUGS (3)
  1. ZYPREXA [Concomitant]
  2. SEROQUEL [Suspect]
     Route: 048
  3. VALPROATE SODIUM [Concomitant]
     Route: 048

REACTIONS (1)
  - PANCYTOPENIA [None]
